FAERS Safety Report 10228158 (Version 1)
Quarter: 2014Q2

REPORT INFORMATION
  Report Type: Report from Study
  Country: US (occurrence: US)
  Receive Date: 20140610
  Receipt Date: 20140610
  Transmission Date: 20141212
  Serious: Yes (Hospitalization)
  Sender: FDA-Public Use
  Company Number: US-MERCK-1406USA003928

PATIENT
  Age: 79 Year
  Sex: Female

DRUGS (4)
  1. VORINOSTAT [Suspect]
     Indication: ACUTE MYELOID LEUKAEMIA
     Dosage: 500 MG, TID
     Route: 048
     Dates: start: 20140508, end: 20140510
  2. VORINOSTAT [Suspect]
     Dosage: 300 MG, QD
     Route: 048
     Dates: start: 20140511, end: 20140517
  3. TEMODAR [Suspect]
     Indication: ACUTE MYELOID LEUKAEMIA
     Dosage: 180 MG, QD
     Route: 048
     Dates: start: 20140424, end: 20140506
  4. TEMODAR [Suspect]
     Dosage: 360 MG, QD
     Route: 048
     Dates: start: 20140511, end: 20140517

REACTIONS (1)
  - Febrile neutropenia [Not Recovered/Not Resolved]
